FAERS Safety Report 16890567 (Version 3)
Quarter: 2019Q4

REPORT INFORMATION
  Report Type: Spontaneous
  Country: US (occurrence: US)
  Receive Date: 20191007
  Receipt Date: 20191202
  Transmission Date: 20200122
  Serious: Yes (Other)
  Sender: FDA-Public Use
  Company Number: US-PFIZER INC-2019426243

PATIENT
  Age: 70 Year
  Sex: Female

DRUGS (3)
  1. FEMARA [Suspect]
     Active Substance: LETROZOLE
     Dosage: UNK
  2. IBRANCE [Suspect]
     Active Substance: PALBOCICLIB
     Indication: BREAST CANCER FEMALE
     Dosage: 125 MG, CYCLIC (DAILY FOR 21 DAYS, 7 DAYS OFF)
     Route: 048
     Dates: start: 201906
  3. IBRANCE [Suspect]
     Active Substance: PALBOCICLIB
     Dosage: 100 MG, CYCLIC (21 DAYS ON, 7 DAYS OFF)
     Route: 048
     Dates: start: 2019

REACTIONS (9)
  - Blood count abnormal [Unknown]
  - Skin haemorrhage [Unknown]
  - Ocular hyperaemia [Unknown]
  - Pruritus [Unknown]
  - Eye inflammation [Unknown]
  - Skin irritation [Unknown]
  - Eye pain [Unknown]
  - Blood pressure increased [Unknown]
  - Dry skin [Unknown]

NARRATIVE: CASE EVENT DATE: 201911
